FAERS Safety Report 25723532 (Version 1)
Quarter: 2025Q3

REPORT INFORMATION
  Report Type: Spontaneous
  Country: EU (occurrence: EU)
  Receive Date: 20250825
  Receipt Date: 20250825
  Transmission Date: 20251021
  Serious: Yes (Other)
  Sender: NOVO NORDISK
  Company Number: EU-NOVOPROD-1502232

PATIENT
  Age: 42 Year
  Sex: Female
  Weight: 53 kg

DRUGS (1)
  1. OZEMPIC [Suspect]
     Active Substance: SEMAGLUTIDE
     Indication: Weight control

REACTIONS (2)
  - Facial wasting [Unknown]
  - Off label use [Unknown]
